FAERS Safety Report 8298012-3 (Version None)
Quarter: 2012Q2

REPORT INFORMATION
  Report Type: 
  Country: None (occurrence: None)
  Receive Date: 20120419
  Receipt Date: 20120410
  Transmission Date: 20120825
  Serious: No
  Sender: FDA-Public Use
  Company Number: US-BAYER-2012-036121

PATIENT
  Age: 84 Year
  Sex: Female
  Weight: 72 kg

DRUGS (4)
  1. ALEVE (CAPLET) [Suspect]
     Indication: ARTHRITIS
     Dosage: 2 U, QOD
     Route: 048
  2. ASPIRIN [Concomitant]
  3. AMLODIPINE [Concomitant]
  4. LIPITOR [Concomitant]

REACTIONS (1)
  - NO ADVERSE EVENT [None]
